FAERS Safety Report 18382999 (Version 1)
Quarter: 2020Q4

REPORT INFORMATION
  Report Type: Spontaneous
  Country: CN (occurrence: CN)
  Receive Date: 20201014
  Receipt Date: 20201014
  Transmission Date: 20210114
  Serious: Yes (Death)
  Sender: FDA-Public Use
  Company Number: CN-ASTRAZENECA-2020SF31550

PATIENT
  Age: 20153 Day
  Sex: Male

DRUGS (1)
  1. OSIMERTINIB. [Suspect]
     Active Substance: OSIMERTINIB
     Indication: EGFR GENE MUTATION
     Dosage: 80
     Route: 048
     Dates: start: 20170914

REACTIONS (3)
  - Paronychia [Not Recovered/Not Resolved]
  - Death [Fatal]
  - Pyrexia [Recovered/Resolved]

NARRATIVE: CASE EVENT DATE: 20181010
